FAERS Safety Report 8830372 (Version 1)
Quarter: 2012Q4

REPORT INFORMATION
  Report Type: Spontaneous
  Country: US (occurrence: None)
  Receive Date: 20121004
  Receipt Date: 20121004
  Transmission Date: 20130627
  Serious: Yes (Other)
  Sender: FDA-Public Use
  Company Number: HA12-280-AE

PATIENT
  Age: 58 Year
  Sex: Female
  Weight: 48.99 kg

DRUGS (3)
  1. TRAMADOL HCL [Suspect]
     Indication: PAIN BACK
     Dosage: 1 tab, Q4H-Q6H/day
     Route: 048
  2. ESTROGEN PATCH [Concomitant]
  3. PROBIOTIC [Concomitant]

REACTIONS (5)
  - Palpitations [None]
  - Loss of consciousness [None]
  - Loss of consciousness [None]
  - Dizziness [None]
  - Fear of death [None]
